FAERS Safety Report 7400683-8 (Version None)
Quarter: 2011Q2

REPORT INFORMATION
  Report Type: 
  Country: None (occurrence: None)
  Receive Date: 20110407
  Receipt Date: 20110331
  Transmission Date: 20111010
  Serious: Yes (Other)
  Sender: FDA-Public Use
  Company Number: A0886257A

PATIENT
  Age: 44 Year
  Sex: Female

DRUGS (3)
  1. UNSPECIFIED MEDICATIONS [Concomitant]
  2. WELLBUTRIN [Suspect]
     Indication: DEPRESSION
     Route: 065
     Dates: end: 20100802
  3. REBIF [Suspect]
     Indication: MULTIPLE SCLEROSIS
     Dosage: 44MCG THREE TIMES PER WEEK
     Route: 058
     Dates: start: 20080314

REACTIONS (9)
  - MEMORY IMPAIRMENT [None]
  - CONTUSION [None]
  - ASTHENIA [None]
  - CONVULSION [None]
  - INJECTION SITE HAEMATOMA [None]
  - GAIT DISTURBANCE [None]
  - MULTIPLE SCLEROSIS RELAPSE [None]
  - DRUG INEFFECTIVE [None]
  - FALL [None]
